FAERS Safety Report 4385443-7 (Version None)
Quarter: 2004Q2

REPORT INFORMATION
  Report Type: 
  Country: None (occurrence: None)
  Receive Date: 20040628
  Receipt Date: 20040622
  Transmission Date: 20050107
  Serious: Yes (Hospitalization)
  Sender: FDA-Public Use
  Company Number: PHBS2004ES08155

PATIENT
  Age: 26 Year
  Sex: Female

DRUGS (6)
  1. TRILEPTAL [Suspect]
     Dosage: 600 MG/D
     Route: 048
     Dates: start: 20031111, end: 20031128
  2. DEPAKENE [Suspect]
     Dosage: 1 G/D
     Route: 048
     Dates: start: 20031111, end: 20031128
  3. RISPERDAL [Suspect]
     Dosage: 3 ML/D
     Route: 048
     Dates: start: 20031111, end: 20031128
  4. SEROQUEL [Suspect]
     Dosage: 400 MG/D
     Route: 048
     Dates: start: 20031111, end: 20031128
  5. DEPRAX [Suspect]
     Dosage: 100 MG/D
     Route: 048
     Dates: start: 20031111, end: 20031128
  6. SEROXAT ^SMITHKLINE BEECHAM^ [Suspect]
     Dosage: 40 MG/D
     Route: 048
     Dates: start: 20031111, end: 20031128

REACTIONS (4)
  - AGGRESSION [None]
  - ASTHENIA [None]
  - SLEEP APNOEA SYNDROME [None]
  - SOMNOLENCE [None]
